FAERS Safety Report 9649117 (Version 2)
Quarter: 2013Q4

REPORT INFORMATION
  Report Type: Spontaneous
  Country: US (occurrence: US)
  Receive Date: 20131028
  Receipt Date: 20131028
  Transmission Date: 20140711
  Serious: No
  Sender: FDA-Public Use
  Company Number: -SAAVPROD-POMP-1001934

PATIENT
  Age: 35 Year
  Sex: Female

DRUGS (9)
  1. ALGLUCOSIDASE ALFA [Suspect]
     Indication: GLYCOGEN STORAGE DISEASE TYPE II
     Dosage: 1400 MG, Q2W
     Route: 042
     Dates: start: 20111109
  2. ALGLUCOSIDASE ALFA [Suspect]
     Indication: GLYCOGEN STORAGE DISEASE TYPE II
     Dosage: UNK
     Dates: start: 200605
  3. PARACETAMOL [Concomitant]
     Indication: PREMEDICATION
     Dosage: 1000 MG, Q2W
     Dates: start: 2006
  4. DIPHENHYDRAMINE HYDROCHLORIDE [Concomitant]
     Indication: PREMEDICATION
     Dosage: 25 MG, Q2W
     Dates: start: 2006
  5. PREDNISONE [Concomitant]
     Indication: PREMEDICATION
     Dosage: 40 MG, Q2W
     Dates: start: 2006
  6. VITAMINS NOS [Concomitant]
     Indication: PRODUCT USED FOR UNKNOWN INDICATION
     Dosage: UNK
  7. LABETALOL [Concomitant]
     Indication: HYPERTENSION
     Dosage: 200 MG, BID
     Dates: start: 2010
  8. PROMETHAZINE HYDROCHLORIDE [Concomitant]
     Indication: NAUSEA
     Dosage: 25 MG, Q4HR
     Dates: start: 2006
  9. PROMETHAZINE HYDROCHLORIDE [Concomitant]
     Indication: INFUSION RELATED REACTION
     Dosage: 25 MG, Q4HR
     Dates: start: 2006

REACTIONS (1)
  - Maternal exposure during pregnancy [Unknown]
